FAERS Safety Report 4289182-2 (Version None)
Quarter: 2004Q1

REPORT INFORMATION
  Report Type: 
  Country: None (occurrence: None)
  Receive Date: 20040209
  Receipt Date: 20040209
  Transmission Date: 20041129
  Serious: Yes (Life-Threatening, Hospitalization, Disabling, Congenital Anomaly)
  Sender: FDA-Public Use
  Company Number: None

PATIENT
  Sex: Female
  Weight: 63.5036 kg

DRUGS (6)
  1. PROZAC [Suspect]
     Indication: DEPRESSION
     Dosage: 40MG  QD ORAL ORAL
     Route: 048
     Dates: start: 19890727, end: 20021230
  2. PROZAC [Suspect]
     Indication: OBSESSIVE-COMPULSIVE DISORDER
     Dosage: 40MG  QD ORAL ORAL
     Route: 048
     Dates: start: 19890727, end: 20021230
  3. PROZAC [Suspect]
     Indication: PAIN
     Dosage: 40MG  QD ORAL ORAL
     Route: 048
     Dates: start: 19890727, end: 20021230
  4. BENXODIAZIPINES [Concomitant]
  5. PAIN PILLS [Concomitant]
  6. SSRI'S [Concomitant]

REACTIONS (11)
  - AGGRESSION [None]
  - ANXIETY [None]
  - ARTHRALGIA [None]
  - FIBROMYALGIA [None]
  - GASTROINTESTINAL DISORDER [None]
  - HEPATOMEGALY [None]
  - INSOMNIA [None]
  - MANIA [None]
  - MENSTRUAL DISORDER [None]
  - MOOD ALTERED [None]
  - SUICIDAL IDEATION [None]
